FAERS Safety Report 7133560-0 (Version None)
Quarter: 2010Q4

REPORT INFORMATION
  Report Type: 
  Country: None (occurrence: None)
  Receive Date: 20101202
  Receipt Date: 20101019
  Transmission Date: 20110411
  Serious: Yes (Death, Hospitalization, Other)
  Sender: FDA-Public Use
  Company Number: US-BAXTER-2008BH009162

PATIENT
  Age: 6 Month
  Sex: Male
  Weight: 8 kg

DRUGS (97)
  1. HEPARIN SODIUM INJECTION [Suspect]
     Indication: CENTRAL VENOUS CATHETERISATION
     Route: 042
     Dates: start: 20070629, end: 20071119
  2. HEPARIN SODIUM INJECTION [Suspect]
     Indication: INTRAVENOUS CATHETER MANAGEMENT
     Route: 042
     Dates: start: 20070629, end: 20071119
  3. HEPARIN SODIUM INJECTION [Suspect]
     Indication: PARENTERAL NUTRITION
     Route: 042
     Dates: start: 20070629, end: 20071119
  4. HEPARIN SODIUM INJECTION [Suspect]
     Route: 042
     Dates: start: 20070921, end: 20070927
  5. HEPARIN SODIUM INJECTION [Suspect]
     Route: 042
     Dates: start: 20070921, end: 20070927
  6. HEPARIN SODIUM INJECTION [Suspect]
     Route: 042
     Dates: start: 20070921, end: 20070927
  7. HEPARIN SODIUM INJECTION [Suspect]
     Route: 042
     Dates: start: 20070927, end: 20070930
  8. HEPARIN SODIUM INJECTION [Suspect]
     Route: 042
     Dates: start: 20070927, end: 20070930
  9. HEPARIN SODIUM INJECTION [Suspect]
     Route: 042
     Dates: start: 20070927, end: 20070930
  10. HEPARIN SODIUM INJECTION [Suspect]
     Route: 042
     Dates: start: 20071002, end: 20071119
  11. HEPARIN SODIUM INJECTION [Suspect]
     Route: 042
     Dates: start: 20071002, end: 20071119
  12. HEPARIN SODIUM INJECTION [Suspect]
     Route: 042
     Dates: start: 20071002, end: 20071119
  13. HEPARIN SODIUM INJECTION [Suspect]
     Route: 042
     Dates: start: 20070929, end: 20071002
  14. HEPARIN SODIUM INJECTION [Suspect]
     Route: 042
     Dates: start: 20070929, end: 20071002
  15. HEPARIN SODIUM INJECTION [Suspect]
     Route: 042
     Dates: start: 20070929, end: 20071002
  16. HEPARIN SODIUM INJECTION [Suspect]
     Route: 042
     Dates: start: 20070921, end: 20070927
  17. HEPARIN SODIUM INJECTION [Suspect]
     Route: 042
     Dates: start: 20070921, end: 20070927
  18. HEPARIN SODIUM INJECTION [Suspect]
     Route: 042
     Dates: start: 20070921, end: 20070927
  19. HEPARIN SODIUM INJECTION [Suspect]
     Route: 042
     Dates: start: 20071002, end: 20071103
  20. HEPARIN SODIUM INJECTION [Suspect]
     Route: 042
     Dates: start: 20071002, end: 20071103
  21. HEPARIN SODIUM INJECTION [Suspect]
     Route: 042
     Dates: start: 20071002, end: 20071103
  22. HEPARIN SODIUM INJECTION [Suspect]
     Route: 042
     Dates: start: 20071116, end: 20071119
  23. HEPARIN SODIUM INJECTION [Suspect]
     Route: 042
     Dates: start: 20071116, end: 20071119
  24. HEPARIN SODIUM INJECTION [Suspect]
     Route: 042
     Dates: start: 20071116, end: 20071119
  25. HEPARIN SODIUM INJECTION [Suspect]
     Route: 042
     Dates: start: 20071115, end: 20071115
  26. HEPARIN SODIUM INJECTION [Suspect]
     Route: 042
     Dates: start: 20071115, end: 20071115
  27. HEPARIN SODIUM INJECTION [Suspect]
     Route: 042
     Dates: start: 20071115, end: 20071115
  28. HEPARIN SODIUM INJECTION [Suspect]
     Route: 042
     Dates: start: 20071117, end: 20071117
  29. HEPARIN SODIUM INJECTION [Suspect]
     Route: 042
     Dates: start: 20071117, end: 20071117
  30. HEPARIN SODIUM INJECTION [Suspect]
     Route: 042
     Dates: start: 20071117, end: 20071117
  31. HEPARIN SODIUM INJECTION [Suspect]
     Route: 042
     Dates: start: 20070927, end: 20071002
  32. HEPARIN SODIUM INJECTION [Suspect]
     Route: 042
     Dates: start: 20070927, end: 20071002
  33. HEPARIN SODIUM INJECTION [Suspect]
     Route: 042
     Dates: start: 20070927, end: 20071002
  34. HEPARIN SODIUM INJECTION [Suspect]
     Route: 042
     Dates: start: 20070927, end: 20070930
  35. HEPARIN SODIUM INJECTION [Suspect]
     Route: 042
     Dates: start: 20070927, end: 20070930
  36. HEPARIN SODIUM INJECTION [Suspect]
     Route: 042
     Dates: start: 20070927, end: 20070930
  37. HEPARIN SODIUM INJECTION [Suspect]
     Route: 042
     Dates: start: 20070927, end: 20070930
  38. HEPARIN SODIUM INJECTION [Suspect]
     Route: 042
     Dates: start: 20070801
  39. HEPARIN SODIUM INJECTION [Suspect]
     Route: 042
     Dates: start: 20070628, end: 20071119
  40. PHENOBARBITAL TAB [Concomitant]
     Indication: PRODUCT USED FOR UNKNOWN INDICATION
     Route: 065
  41. PEPCID [Concomitant]
     Indication: PRODUCT USED FOR UNKNOWN INDICATION
     Route: 065
  42. ZOFRAN [Concomitant]
     Indication: PRODUCT USED FOR UNKNOWN INDICATION
     Route: 065
  43. GRANULOCYTE COLONY STIMULATING FACTOR [Concomitant]
     Indication: PRODUCT USED FOR UNKNOWN INDICATION
     Route: 065
  44. SALINE [Concomitant]
     Indication: PRODUCT USED FOR UNKNOWN INDICATION
     Route: 065
  45. NYSTATIN [Concomitant]
     Indication: PRODUCT USED FOR UNKNOWN INDICATION
     Route: 065
  46. DEXAMETHASONE [Concomitant]
     Indication: PRODUCT USED FOR UNKNOWN INDICATION
     Route: 048
  47. CISPLATIN [Concomitant]
     Indication: CHEMOTHERAPY
     Route: 065
  48. VINCRISTINE [Concomitant]
     Indication: CHEMOTHERAPY
     Route: 065
  49. ETOPOSIDE [Concomitant]
     Indication: CHEMOTHERAPY
     Route: 065
  50. CYTOXAN [Concomitant]
     Indication: CHEMOTHERAPY
     Route: 065
  51. CARBOPLATIN [Concomitant]
     Indication: CHEMOTHERAPY
     Route: 065
  52. KEFLEX [Concomitant]
     Indication: WOUND INFECTION
     Route: 048
  53. ACTIVASE [Concomitant]
     Indication: MEDICAL DEVICE COMPLICATION
     Route: 042
  54. SIMILAC [Concomitant]
     Indication: PRODUCT USED FOR UNKNOWN INDICATION
     Route: 065
  55. CLINDAMYCIN [Concomitant]
     Indication: PRODUCT USED FOR UNKNOWN INDICATION
     Route: 042
  56. CYCLOPHOSPHAMIDE [Concomitant]
     Indication: PRODUCT USED FOR UNKNOWN INDICATION
     Route: 042
  57. FAMOTIDINE [Concomitant]
     Indication: PRODUCT USED FOR UNKNOWN INDICATION
     Route: 065
  58. FILGRASTIM [Concomitant]
     Indication: PRODUCT USED FOR UNKNOWN INDICATION
     Route: 065
  59. FUROSEMIDE [Concomitant]
     Indication: PRODUCT USED FOR UNKNOWN INDICATION
     Route: 065
  60. MESNA [Concomitant]
     Indication: PRODUCT USED FOR UNKNOWN INDICATION
     Route: 065
  61. ONDANSETRON [Concomitant]
     Indication: PRODUCT USED FOR UNKNOWN INDICATION
     Route: 065
  62. PENTAMIDINE ISETHIONATE [Concomitant]
     Indication: PRODUCT USED FOR UNKNOWN INDICATION
     Route: 065
  63. HYDRALAZINE [Concomitant]
     Indication: PRODUCT USED FOR UNKNOWN INDICATION
     Route: 065
  64. CEFEPIME [Concomitant]
     Indication: PRODUCT USED FOR UNKNOWN INDICATION
     Route: 065
  65. FLUCONAZOLE [Concomitant]
     Indication: PRODUCT USED FOR UNKNOWN INDICATION
     Route: 065
  66. ACETAMINOPHEN [Concomitant]
     Indication: PRODUCT USED FOR UNKNOWN INDICATION
     Route: 065
  67. ACTIVASE [Concomitant]
     Indication: PRODUCT USED FOR UNKNOWN INDICATION
     Route: 065
  68. CEFTAZIDIME [Concomitant]
     Indication: PRODUCT USED FOR UNKNOWN INDICATION
     Route: 065
  69. CHLORAL HYDRATE [Concomitant]
     Indication: PRODUCT USED FOR UNKNOWN INDICATION
     Route: 065
  70. DIPHENHYDRAMINE [Concomitant]
     Indication: PRODUCT USED FOR UNKNOWN INDICATION
     Route: 065
  71. HYDRALAZINE [Concomitant]
     Route: 065
  72. POTASSIUM CHLORIDE [Concomitant]
     Indication: PRODUCT USED FOR UNKNOWN INDICATION
     Route: 065
  73. CALCIUM GLUCONATE [Concomitant]
     Indication: PRODUCT USED FOR UNKNOWN INDICATION
     Route: 042
  74. FENTANYL [Concomitant]
     Indication: PRODUCT USED FOR UNKNOWN INDICATION
     Route: 065
  75. MIDAZOLAM [Concomitant]
     Indication: PRODUCT USED FOR UNKNOWN INDICATION
     Route: 065
  76. MIDAZOLAM [Concomitant]
     Route: 065
  77. BACITRACIN [Concomitant]
     Indication: PRODUCT USED FOR UNKNOWN INDICATION
     Route: 065
  78. PROMETHAZINE [Concomitant]
     Indication: PRODUCT USED FOR UNKNOWN INDICATION
     Route: 065
  79. LORAZEPAM [Concomitant]
     Indication: PRODUCT USED FOR UNKNOWN INDICATION
     Route: 065
  80. CHLORHEXIDINE GLUCONATE [Concomitant]
     Indication: PRODUCT USED FOR UNKNOWN INDICATION
     Route: 065
  81. HYDROCORTISONE [Concomitant]
     Indication: PRODUCT USED FOR UNKNOWN INDICATION
     Route: 065
  82. MANNITOL [Concomitant]
     Indication: PRODUCT USED FOR UNKNOWN INDICATION
     Route: 065
  83. THIOTEPA [Concomitant]
     Indication: PRODUCT USED FOR UNKNOWN INDICATION
     Route: 065
  84. VERSED [Concomitant]
     Indication: PRODUCT USED FOR UNKNOWN INDICATION
     Route: 065
  85. CEFTAZIDIME [Concomitant]
     Route: 065
  86. RANITIDINE [Concomitant]
     Indication: PRODUCT USED FOR UNKNOWN INDICATION
     Route: 065
  87. CHLORHEXIDINE GLUCONATE [Concomitant]
     Route: 065
  88. SODIUM CHLORIDE [Concomitant]
     Indication: PRODUCT USED FOR UNKNOWN INDICATION
     Route: 065
  89. FILGRASTIM [Concomitant]
     Route: 065
  90. VANCOMYCIN [Concomitant]
     Indication: PRODUCT USED FOR UNKNOWN INDICATION
     Route: 065
  91. MORPHINE [Concomitant]
     Indication: PRODUCT USED FOR UNKNOWN INDICATION
     Route: 065
  92. PENTAMIDINE ISETHIONATE [Concomitant]
     Route: 065
  93. ONDANSETRON [Concomitant]
     Route: 065
  94. PHENOBARBITAL TAB [Concomitant]
     Route: 065
  95. FAT EMULSIONS [Concomitant]
     Indication: PRODUCT USED FOR UNKNOWN INDICATION
     Route: 065
  96. POTASSIUM CHLORIDE [Concomitant]
     Route: 065
  97. CALCIUM GLUCONATE [Concomitant]
     Route: 065

REACTIONS (24)
  - ABDOMINAL DISTENSION [None]
  - ALOPECIA [None]
  - BLISTER [None]
  - CANDIDIASIS [None]
  - CYANOSIS [None]
  - FAILURE TO THRIVE [None]
  - FLUID OVERLOAD [None]
  - GASTROENTERITIS [None]
  - HYPERTENSION [None]
  - HYPOTENSION [None]
  - INCISION SITE INFECTION [None]
  - IRRITABILITY [None]
  - LETHARGY [None]
  - LUNG DISORDER [None]
  - MULTI-ORGAN FAILURE [None]
  - NEUTROPENIA [None]
  - PAIN [None]
  - PNEUMONIA [None]
  - POOR SUCKING REFLEX [None]
  - PYREXIA [None]
  - RASH [None]
  - RESPIRATORY FAILURE [None]
  - TACHYCARDIA [None]
  - THROMBOCYTOPENIA [None]
